FAERS Safety Report 7730274-0 (Version None)
Quarter: 2011Q3

REPORT INFORMATION
  Report Type: 
  Country: None (occurrence: None)
  Receive Date: 20110906
  Receipt Date: 20110902
  Transmission Date: 20111222
  Serious: Yes (Death)
  Sender: FDA-Public Use
  Company Number: PHHY2011BR77319

PATIENT
  Age: 76 Year
  Sex: Male

DRUGS (5)
  1. FORMOTEROL FUMARATE [Suspect]
     Indication: CHRONIC OBSTRUCTIVE PULMONARY DISEASE
     Dosage: 1 DF, QD
  2. ATROVENT [Concomitant]
  3. BEROTEC [Concomitant]
  4. FORMOTEROL FUMARATE [Suspect]
     Dosage: 2 DF DAILY
  5. SPIRIVA [Concomitant]

REACTIONS (1)
  - CARDIO-RESPIRATORY ARREST [None]
